FAERS Safety Report 16262251 (Version 1)
Quarter: 2019Q2

REPORT INFORMATION
  Report Type: Spontaneous
  Country: US (occurrence: US)
  Receive Date: 20190501
  Receipt Date: 20190501
  Transmission Date: 20190711
  Serious: Yes (Hospitalization)
  Sender: FDA-Public Use
  Company Number: US-MALLINCKRODT-T201903303

PATIENT
  Sex: Female

DRUGS (1)
  1. H.P. ACTHAR [Suspect]
     Active Substance: CORTICOTROPIN
     Indication: RHEUMATOID ARTHRITIS
     Dosage: 80 UNITS (1 ML) EVERY 24-72 HRS (MAXIMUM DOSE OF 2 INJECTIONS PER WEEK)
     Route: 058
     Dates: start: 201805

REACTIONS (2)
  - Nasopharyngitis [Unknown]
  - Pleural effusion [Unknown]
